FAERS Safety Report 7723047-6 (Version None)
Quarter: 2011Q3

REPORT INFORMATION
  Report Type: 
  Country: None (occurrence: None)
  Receive Date: 20110901
  Receipt Date: 20110823
  Transmission Date: 20111222
  Serious: Yes (Hospitalization)
  Sender: FDA-Public Use
  Company Number: JP-BAYER-200812925BYL

PATIENT
  Age: 66 Year
  Sex: Male
  Weight: 66 kg

DRUGS (2)
  1. NEXAVAR [Suspect]
     Indication: RENAL CELL CARCINOMA STAGE IV
     Dosage: 200 MG, BID
     Route: 048
     Dates: start: 20081110, end: 20081122
  2. SENNOSIDE [Concomitant]
     Indication: CONSTIPATION
     Dosage: 36 MG, UNK
     Route: 048
     Dates: start: 20081110, end: 20081112

REACTIONS (2)
  - ERYTHEMA MULTIFORME [None]
  - C-REACTIVE PROTEIN INCREASED [None]
